FAERS Safety Report 8264948-2 (Version None)
Quarter: 2012Q2

REPORT INFORMATION
  Report Type: 
  Country: None (occurrence: None)
  Receive Date: 20120406
  Receipt Date: 20120327
  Transmission Date: 20120825
  Serious: Yes (Hospitalization)
  Sender: FDA-Public Use
  Company Number: US-SANOFI-AVENTIS-2012SA021102

PATIENT
  Age: 71 Year
  Sex: Male

DRUGS (1)
  1. DRONEDARONE HCL [Suspect]
     Indication: ATRIAL FIBRILLATION
     Route: 065

REACTIONS (11)
  - DECREASED APPETITE [None]
  - PURPURA [None]
  - LARGE INTESTINAL ULCER [None]
  - HENOCH-SCHONLEIN PURPURA [None]
  - RASH GENERALISED [None]
  - ABDOMINAL PAIN LOWER [None]
  - DERMATITIS BULLOUS [None]
  - RECTAL HAEMORRHAGE [None]
  - PYREXIA [None]
  - DYSPNOEA [None]
  - BACK PAIN [None]
